FAERS Safety Report 5831857-5 (Version None)
Quarter: 2008Q3

REPORT INFORMATION
  Report Type: 
  Country: None (occurrence: None)
  Receive Date: 20080804
  Receipt Date: 20080731
  Transmission Date: 20090109
  Serious: Yes (Hospitalization, Other)
  Sender: FDA-Public Use
  Company Number: US-BRISTOL-MYERS SQUIBB COMPANY-14284574

PATIENT
  Age: 61 Year
  Sex: Female

DRUGS (3)
  1. CYTOXAN [Suspect]
     Dosage: 2ND CYCLE ON 23JUN08.
     Dates: start: 20080623, end: 20080623
  2. DOCETAXEL [Suspect]
     Dates: start: 20080623, end: 20080623
  3. PEGFILGRASTIM [Suspect]

REACTIONS (9)
  - AMNESIA [None]
  - CHEST DISCOMFORT [None]
  - DYSPNOEA [None]
  - FALL [None]
  - FLUSHING [None]
  - HAEMATOMA [None]
  - HEAD INJURY [None]
  - HYPERSENSITIVITY [None]
  - LOSS OF CONSCIOUSNESS [None]
